FAERS Safety Report 4514852-8 (Version None)
Quarter: 2004Q4

REPORT INFORMATION
  Report Type: 
  Country: None (occurrence: None)
  Receive Date: 20041201
  Receipt Date: 20041102
  Transmission Date: 20050328
  Serious: Yes (Other)
  Sender: FDA-Public Use
  Company Number: GB-NOVOPROD-240253

PATIENT
  Age: 46 Year
  Sex: Female
  Weight: 53 kg

DRUGS (6)
  1. INSULATARD FLEXPEN [Suspect]
     Indication: DIABETES MELLITUS INSULIN-DEPENDENT
     Dosage: 19 IU, QD
     Route: 058
     Dates: start: 20030401, end: 20030501
  2. INSULATARD FLEXPEN [Suspect]
     Dosage: 18 IU, QD
     Route: 058
     Dates: start: 20030901, end: 20040101
  3. NOVORAPID FLEXPEN [Suspect]
     Indication: DIABETES MELLITUS INSULIN-DEPENDENT
     Dosage: 15 IU, UNK
     Dates: start: 20030601, end: 20040717
  4. LEVEMIR FLEXPEN [Suspect]
     Indication: DIABETES MELLITUS INSULIN-DEPENDENT
     Dosage: 19 IU, QD
     Dates: start: 20040101, end: 20040717
  5. INSULIN GLARGINE [Concomitant]
     Indication: ILL-DEFINED DISORDER
     Dosage: 12 IU, QD
     Route: 058
     Dates: start: 20030601, end: 20030901
  6. NOVOMIX 30 PENFILL [Suspect]
     Indication: DIABETES MELLITUS INSULIN-DEPENDENT
     Dosage: UNK, UNK
     Dates: start: 20030501, end: 20030601

REACTIONS (27)
  - ABNORMAL BEHAVIOUR [None]
  - AFFECT LABILITY [None]
  - AGITATION [None]
  - AMNESIA [None]
  - APHASIA [None]
  - ARTHRALGIA [None]
  - ARTHROPATHY [None]
  - BLOOD GLUCOSE FLUCTUATION [None]
  - COGNITIVE DISORDER [None]
  - ENERGY INCREASED [None]
  - EXERCISE CAPACITY DECREASED [None]
  - FATIGUE [None]
  - FEELING ABNORMAL [None]
  - GLYCOSYLATED HAEMOGLOBIN INCREASED [None]
  - HYPERSOMNIA [None]
  - HYPERVIGILANCE [None]
  - HYPOGLYCAEMIA [None]
  - INFECTION [None]
  - JOINT STIFFNESS [None]
  - NAUSEA [None]
  - OBSESSIVE THOUGHTS [None]
  - PANIC REACTION [None]
  - PARANOIA [None]
  - PSYCHIATRIC SYMPTOM [None]
  - PSYCHOMOTOR HYPERACTIVITY [None]
  - STRESS SYMPTOMS [None]
  - WEIGHT INCREASED [None]
